FAERS Safety Report 4519288-1 (Version None)
Quarter: 2004Q4

REPORT INFORMATION
  Report Type: 
  Country: None (occurrence: None)
  Receive Date: 20041206
  Receipt Date: 20040805
  Transmission Date: 20050328
  Serious: Yes (Other)
  Sender: FDA-Public Use
  Company Number: US-GLAXOSMITHKLINE-A0521100A

PATIENT
  Age: 52 Year
  Sex: Male

DRUGS (4)
  1. LAMICTAL [Suspect]
     Indication: BIPOLAR DISORDER
     Route: 048
     Dates: start: 20040501, end: 20040601
  2. WELLBUTRIN [Concomitant]
  3. SEROQUEL [Concomitant]
  4. KLONOPIN [Concomitant]

REACTIONS (7)
  - ATAXIA [None]
  - BALANCE DISORDER [None]
  - COORDINATION ABNORMAL [None]
  - DYSGRAPHIA [None]
  - FUMBLING [None]
  - GAIT DISTURBANCE [None]
  - MOTOR DYSFUNCTION [None]
